FAERS Safety Report 8860322 (Version 1)
Quarter: 2012Q4

REPORT INFORMATION
  Report Type: 
  Country: US (occurrence: US)
  Receive Date: 20121025
  Receipt Date: 20121025
  Transmission Date: 20130627
  Serious: Yes (Other)
  Sender: FDA-Public Use
  Company Number: US-PFIZER INC-2012264847

PATIENT
  Age: 71 Year
  Sex: Male
  Weight: 97.05 kg

DRUGS (3)
  1. LYRICA [Suspect]
     Indication: NEUROPATHY PERIPHERAL
     Dosage: 75 mg, daily
     Route: 048
     Dates: start: 201210
  2. LYRICA [Suspect]
     Dosage: 75 mg, 2x/day
     Route: 048
     Dates: start: 20121013
  3. NEURONTIN [Suspect]
     Indication: NEUROPATHY PERIPHERAL
     Dosage: 300 mg, 3x/day
     Dates: start: 201208

REACTIONS (3)
  - Vision blurred [Not Recovered/Not Resolved]
  - Neuropathy peripheral [Unknown]
  - Hypotension [Unknown]
